FAERS Safety Report 7426896-7 (Version None)
Quarter: 2011Q2

REPORT INFORMATION
  Report Type: 
  Country: None (occurrence: None)
  Receive Date: 20110415
  Receipt Date: 20110415
  Transmission Date: 20111010
  Serious: Yes (Hospitalization)
  Sender: FDA-Public Use
  Company Number: None

PATIENT
  Sex: Female
  Weight: 49 kg

DRUGS (4)
  1. CYCLOPHOSPHAMIDE [Suspect]
     Dosage: 1035 MG
  2. DOXIL [Suspect]
     Dosage: 55 MG
  3. PREDNISONE [Suspect]
     Dosage: 500 MG
  4. VINCRISTINE SULFATE [Suspect]
     Dosage: 1.9 MG

REACTIONS (7)
  - HYPOCALCAEMIA [None]
  - LEUKOENCEPHALOPATHY [None]
  - RESPIRATORY FAILURE [None]
  - DYSPHAGIA [None]
  - HYPERCALCAEMIA [None]
  - CARDIAC ARREST [None]
  - GENERAL PHYSICAL HEALTH DETERIORATION [None]
